FAERS Safety Report 25332361 (Version 1)
Quarter: 2025Q2

REPORT INFORMATION
  Report Type: Spontaneous
  Country: US (occurrence: US)
  Receive Date: 20250519
  Receipt Date: 20250519
  Transmission Date: 20250717
  Serious: Yes (Other)
  Sender: Alora Pharma
  Company Number: US-AVION PHARMACEUTICALS-2025ALO02218

PATIENT
  Sex: Female

DRUGS (3)
  1. PONSTEL [Suspect]
     Active Substance: MEFENAMIC ACID
     Indication: Abortion induced
     Dosage: 250 MG, EVERY 6 HOURS FOR A TOTAL OF 8 DOSES BEGINNING 15 MINUTES AFTER COMPLETION OF THE SALINE INJ
     Route: 048
  2. SODIUM CHLORIDE [Concomitant]
     Active Substance: SODIUM CHLORIDE
     Route: 012
  3. MEPERIDINE [Concomitant]
     Active Substance: MEPERIDINE
     Route: 051

REACTIONS (1)
  - Induced abortion failed [Recovered/Resolved]
